FAERS Safety Report 24276787 (Version 1)
Quarter: 2024Q3

REPORT INFORMATION
  Report Type: Spontaneous
  Country: NL (occurrence: NL)
  Receive Date: 20240903
  Receipt Date: 20240903
  Transmission Date: 20241017
  Serious: Yes (Hospitalization)
  Sender: AMGEN
  Company Number: NL-AMGEN-NLDSP2024170295

PATIENT

DRUGS (1)
  1. FILGRASTIM [Suspect]
     Active Substance: FILGRASTIM
     Indication: Haematopoietic stem cell mobilisation
     Dosage: UNK (MEDIAN DURATION OF G-CSF USE UNTIL SUCCESSFUL HARVEST WAS 9 DAYS)
     Route: 065

REACTIONS (2)
  - Unevaluable event [Unknown]
  - Treatment failure [Unknown]
